FAERS Safety Report 4562796-8 (Version None)
Quarter: 2005Q1

REPORT INFORMATION
  Report Type: 
  Country: None (occurrence: None)
  Receive Date: 20050121
  Receipt Date: 20050107
  Transmission Date: 20050727
  Serious: Yes (Life-Threatening, Other)
  Sender: FDA-Public Use
  Company Number: 027-0981-990068

PATIENT
  Age: 65 Year
  Sex: Male
  Weight: 83 kg

DRUGS (3)
  1. ATORVASTATIN (ATORVASTATIN) [Suspect]
     Indication: CORONARY ARTERY DISEASE
     Dosage: 10 MG (1 IN 1D) ORAL
     Route: 048
     Dates: start: 19980803, end: 19980925
  2. ATENOLOL [Concomitant]
  3. ACETYLSALICYLIC ACID SRT [Concomitant]

REACTIONS (4)
  - DISORIENTATION [None]
  - GRAND MAL CONVULSION [None]
  - HIGH DENSITY LIPOPROTEIN INCREASED [None]
  - LOSS OF CONSCIOUSNESS [None]
